FAERS Safety Report 5386898-1 (Version None)
Quarter: 2007Q3

REPORT INFORMATION
  Report Type: 
  Country: None (occurrence: None)
  Receive Date: 20070713
  Receipt Date: 20070713
  Transmission Date: 20080115
  Serious: Yes (Other)
  Sender: FDA-Public Use
  Company Number: US-SHR-US-2006-029491

PATIENT
  Sex: Female
  Weight: 90.7 kg

DRUGS (11)
  1. CLIMARA [Suspect]
     Indication: MENOPAUSAL SYMPTOMS
     Dosage: .1 MG/D, CONT
     Route: 062
     Dates: start: 20020101
  2. PREDNISONE [Concomitant]
     Dosage: 5 MG, 1X/DAY
  3. ISONIAZID [Concomitant]
     Dosage: 300 MG, 1X/DAY
  4. SULFAMETHOXAZOLE W/TRIMETHOPRIM [Concomitant]
     Dosage: 400/80 MG, 1X/DAY
  5. PROTONIX [Concomitant]
     Dosage: 40 MG, 1X/DAY
  6. VITAMIN B6 [Concomitant]
     Dosage: UNK, 1X/DAY
  7. VITAMIN CAP [Concomitant]
     Dosage: UNK, 1X/DAY
  8. CATAPRES                                /USA/ [Concomitant]
     Dosage: 1 MG, 1X/DAY
  9. VALCYTE [Concomitant]
     Dosage: 450 MG, 1X/DAY
  10. CELLCEPT [Concomitant]
     Dosage: 250 MG, 6X/DAY
  11. PROGRAF [Concomitant]
     Dosage: 1 MG, 3X/DAY

REACTIONS (3)
  - HOT FLUSH [None]
  - PALPITATIONS [None]
  - RENAL TRANSPLANT [None]
